FAERS Safety Report 7959886-6 (Version None)
Quarter: 2011Q4

REPORT INFORMATION
  Report Type: 
  Country: None (occurrence: None)
  Receive Date: 20111206
  Receipt Date: 20111128
  Transmission Date: 20120403
  Serious: Yes (Other)
  Sender: FDA-Public Use
  Company Number: PHHY2011IT104067

PATIENT
  Age: 1 Month
  Sex: Female

DRUGS (3)
  1. HEPARIN SODIUM [Interacting]
     Dosage: 500 IU/KG, PER DAY
  2. AMIODARONE HCL [Interacting]
     Dosage: 15 MG/KG, PER DAY
  3. AMIODARONE HCL [Suspect]
     Indication: ATRIAL FLUTTER
     Dosage: 5 MG/KG, IN 30 MIN (LOADING DOSE)

REACTIONS (3)
  - DRUG INTERACTION [None]
  - DRUG INEFFECTIVE [None]
  - ATRIAL FLUTTER [None]
